FAERS Safety Report 14352407 (Version 28)
Quarter: 2021Q2

REPORT INFORMATION
  Report Type: Spontaneous
  Country: CA (occurrence: CA)
  Receive Date: 20180104
  Receipt Date: 20210625
  Transmission Date: 20210716
  Serious: Yes (Other)
  Sender: FDA-Public Use
  Company Number: CA-CELLTRION INC.-2017CA017412

PATIENT

DRUGS (33)
  1. INFLECTRA [Suspect]
     Active Substance: INFLIXIMAB-DYYB
     Dosage: 306 MG (EVERY8 WEEKS)
     Route: 042
     Dates: start: 20180514, end: 20190422
  2. INFLECTRA [Suspect]
     Active Substance: INFLIXIMAB-DYYB
     Dosage: 306 MG (EVERY8 WEEKS)
     Route: 042
     Dates: start: 20180911
  3. INFLECTRA [Suspect]
     Active Substance: INFLIXIMAB-DYYB
     Dosage: 306 MG (EVERY8 WEEKS)
     Route: 042
     Dates: start: 20181105
  4. INFLECTRA [Suspect]
     Active Substance: INFLIXIMAB-DYYB
     Dosage: 306 MG (EVERY8 WEEKS)
     Route: 042
     Dates: start: 20190422, end: 20190422
  5. INFLECTRA [Suspect]
     Active Substance: INFLIXIMAB-DYYB
     Dosage: 350 MG EVERY 8 WEEKS
     Route: 042
     Dates: start: 20200408, end: 20200603
  6. INFLECTRA [Suspect]
     Active Substance: INFLIXIMAB-DYYB
     Dosage: 350 MG EVERY 8 WEEKS
     Route: 042
     Dates: start: 20200729
  7. INFLECTRA [Suspect]
     Active Substance: INFLIXIMAB-DYYB
     Dosage: 350 MG EVERY 8 WEEKS
     Route: 042
     Dates: start: 20200408, end: 20200603
  8. INFLECTRA [Suspect]
     Active Substance: INFLIXIMAB-DYYB
     Dosage: 350 MG EVERY 8 WEEKS
     Route: 042
     Dates: start: 20200729
  9. INFLECTRA [Suspect]
     Active Substance: INFLIXIMAB-DYYB
     Dosage: 400 MG EVERY 6 WEEKS
     Route: 042
     Dates: start: 20210130
  10. INFLECTRA [Suspect]
     Active Substance: INFLIXIMAB-DYYB
     Dosage: 400 MG EVERY 6 WEEKS
     Route: 042
     Dates: start: 20210309
  11. INFLECTRA [Suspect]
     Active Substance: INFLIXIMAB-DYYB
     Dosage: 306 MG (EVERY8 WEEKS)
     Route: 042
     Dates: start: 20181231
  12. INFLECTRA [Suspect]
     Active Substance: INFLIXIMAB-DYYB
     Dosage: 400 MG EVERY 6 WEEKS
     Route: 042
     Dates: start: 20200924
  13. LORAZEPAM. [Concomitant]
     Active Substance: LORAZEPAM
     Dosage: 1 MG, AS NEEDED
     Route: 060
     Dates: start: 201710
  14. INFLECTRA [Suspect]
     Active Substance: INFLIXIMAB-DYYB
     Dosage: 350 MG EVERY 8 WEEKS
     Route: 042
     Dates: start: 20200610
  15. INFLECTRA [Suspect]
     Active Substance: INFLIXIMAB-DYYB
     Dosage: 400 MG EVERY 6 WEEKS
     Route: 042
     Dates: start: 20201106
  16. INFLECTRA [Suspect]
     Active Substance: INFLIXIMAB-DYYB
     Dosage: 400 MG EVERY 6 WEEKS
     Route: 042
     Dates: start: 20210614
  17. INFLECTRA [Suspect]
     Active Substance: INFLIXIMAB-DYYB
     Indication: COLITIS ULCERATIVE
     Dosage: 614 MG (EVERY 2, 6 WEEKS, THEN EVERY 8 WEEKS)
     Route: 042
     Dates: start: 20171207, end: 20180319
  18. INFLECTRA [Suspect]
     Active Substance: INFLIXIMAB-DYYB
     Dosage: 614 MG (EVERY 2, 6 WEEKS, THEN EVERY 8 WEEKS)
     Route: 042
  19. INFLECTRA [Suspect]
     Active Substance: INFLIXIMAB-DYYB
     Dosage: 350 MG EVERY 8 WEEKS
     Route: 042
     Dates: start: 20190830
  20. INFLECTRA [Suspect]
     Active Substance: INFLIXIMAB-DYYB
     Dosage: 350 MG EVERY 8 WEEKS
     Route: 042
     Dates: start: 20191024
  21. INFLECTRA [Suspect]
     Active Substance: INFLIXIMAB-DYYB
     Dosage: 400 MG EVERY 6 WEEKS
     Route: 042
     Dates: start: 20210309
  22. INFLECTRA [Suspect]
     Active Substance: INFLIXIMAB-DYYB
     Dosage: 614 MG (EVERY 0, 2, 6 WEEKS, THEN EVERY 8 WEEKS)
     Route: 042
     Dates: start: 20180319, end: 20180319
  23. INFLECTRA [Suspect]
     Active Substance: INFLIXIMAB-DYYB
     Dosage: 306 MG (EVERY8 WEEKS)
     Route: 042
     Dates: start: 20180716
  24. INFLECTRA [Suspect]
     Active Substance: INFLIXIMAB-DYYB
     Dosage: 306 MG (EVERY8 WEEKS)
     Route: 042
     Dates: start: 20190225
  25. INFLECTRA [Suspect]
     Active Substance: INFLIXIMAB-DYYB
     Dosage: 350 MG EVERY 8 WEEKS
     Route: 042
     Dates: start: 20191219
  26. INFLECTRA [Suspect]
     Active Substance: INFLIXIMAB-DYYB
     Dosage: 350 MG EVERY 8 WEEKS
     Route: 042
     Dates: start: 20200212
  27. CITALOPRAM [Concomitant]
     Active Substance: CITALOPRAM HYDROBROMIDE
     Dosage: 10 MG, 1X/DAY
     Route: 048
     Dates: start: 201711
  28. INFLECTRA [Suspect]
     Active Substance: INFLIXIMAB-DYYB
     Dosage: 614 MG (EVERY 2, 6 WEEKS, THEN EVERY 8 WEEKS)
     Route: 042
     Dates: start: 20180118
  29. INFLECTRA [Suspect]
     Active Substance: INFLIXIMAB-DYYB
     Dosage: 306 MG (EVERY8 WEEKS)
     Route: 042
     Dates: start: 20180716
  30. INFLECTRA [Suspect]
     Active Substance: INFLIXIMAB-DYYB
     Dosage: 400 MG EVERY 6 WEEKS
     Route: 042
     Dates: start: 20201218
  31. INFLECTRA [Suspect]
     Active Substance: INFLIXIMAB-DYYB
     Dosage: 350 MG EVERY 8 WEEKS
     Route: 042
     Dates: start: 20190617, end: 20200729
  32. INFLECTRA [Suspect]
     Active Substance: INFLIXIMAB-DYYB
     Dosage: 400 MG EVERY 6 WEEKS
     Route: 042
     Dates: start: 20210422
  33. PREDNISONE. [Concomitant]
     Active Substance: PREDNISONE
     Dosage: 25 MG, 1X/DAY
     Route: 048
     Dates: start: 201711

REACTIONS (30)
  - Haematemesis [Unknown]
  - Off label use [Unknown]
  - Vomiting [Not Recovered/Not Resolved]
  - Hyperhidrosis [Unknown]
  - Vascular access complication [Unknown]
  - Intentional product use issue [Unknown]
  - Paranasal sinus discomfort [Unknown]
  - Gastroenteritis viral [Recovered/Resolved]
  - Pallor [Recovered/Resolved]
  - Nausea [Not Recovered/Not Resolved]
  - Bone abscess [Not Recovered/Not Resolved]
  - Off label use [Unknown]
  - Condition aggravated [Not Recovered/Not Resolved]
  - Malaise [Unknown]
  - Presyncope [Unknown]
  - Flushing [Unknown]
  - Syncope [Unknown]
  - Diarrhoea [Unknown]
  - Administration site extravasation [Unknown]
  - Presyncope [Recovered/Resolved]
  - Blood pressure diastolic decreased [Unknown]
  - Abdominal discomfort [Recovering/Resolving]
  - Weight increased [Unknown]
  - Dizziness [Unknown]
  - Malaise [Not Recovered/Not Resolved]
  - Incorrect dose administered [Unknown]
  - Faecal calprotectin increased [Not Recovered/Not Resolved]
  - Therapeutic response shortened [Unknown]
  - Inappropriate schedule of product administration [Unknown]
  - Tremor [Unknown]

NARRATIVE: CASE EVENT DATE: 20180709
